FAERS Safety Report 6701748-6 (Version None)
Quarter: 2010Q2

REPORT INFORMATION
  Report Type: 
  Country: None (occurrence: None)
  Receive Date: 20100429
  Receipt Date: 20100422
  Transmission Date: 20101027
  Serious: Yes (Death, Hospitalization, Other)
  Sender: FDA-Public Use
  Company Number: PHEH2010US03206

PATIENT
  Sex: Male
  Weight: 78.458 kg

DRUGS (14)
  1. GLEEVEC [Suspect]
     Indication: CHRONIC MYELOID LEUKAEMIA
     Dosage: 400 MG, QD
     Route: 048
     Dates: start: 20020101
  2. GLEEVEC [Suspect]
     Indication: METASTASIS
     Dosage: 100 MG  4 TIMES DAILY
     Route: 048
     Dates: end: 20100202
  3. ALDACTONE [Concomitant]
     Dosage: 1 MG
     Route: 048
  4. FUROSEMIDE [Concomitant]
     Dosage: 40 MG DAILY
     Route: 048
  5. LOVENOX [Concomitant]
     Dosage: 60 MG DAILY
     Route: 058
  6. PROTONIX [Concomitant]
     Dosage: 40 MG DAILY
     Route: 048
  7. CALCITRIOL [Concomitant]
     Dosage: 0.25 MG DAILY
     Route: 048
  8. NITROGLYCERIN [Concomitant]
     Dosage: OINTMENT 2 % EVERY 8 HOURS
  9. DETROL [Concomitant]
     Dosage: 1 MG DAILY
     Route: 048
  10. THORAZINE [Concomitant]
     Dosage: 145 MG DAILY
     Route: 048
  11. ZOSYN [Concomitant]
     Dosage: 2.25 G QH
     Route: 042
  12. ROCALTROL [Concomitant]
     Dosage: 1 MCG DAILY
     Route: 048
  13. LEVAQUIN [Concomitant]
     Dosage: 250 MG DAILY
     Route: 048
  14. SUMEX [Concomitant]

REACTIONS (52)
  - ANAEMIA [None]
  - APHAGIA [None]
  - APNOEIC ATTACK [None]
  - ARRHYTHMIA [None]
  - ATRIAL FIBRILLATION [None]
  - BREATH SOUNDS ABNORMAL [None]
  - BRONCHITIS [None]
  - CARDIAC FAILURE CONGESTIVE [None]
  - CAROTID ENDARTERECTOMY [None]
  - CONSTIPATION [None]
  - DECUBITUS ULCER [None]
  - DIARRHOEA [None]
  - DIVERTICULUM [None]
  - DYSPNOEA [None]
  - DYSPNOEA PAROXYSMAL NOCTURNAL [None]
  - ECCHYMOSIS [None]
  - EXCORIATION [None]
  - GASTRITIS [None]
  - GENERAL PHYSICAL HEALTH DETERIORATION [None]
  - GOITRE [None]
  - GOUT [None]
  - HAEMATOCHEZIA [None]
  - HAEMODIALYSIS [None]
  - HYPERKALAEMIA [None]
  - HYPOKALAEMIA [None]
  - HYPOMAGNESAEMIA [None]
  - HYPOXIA [None]
  - IMPAIRED GASTRIC EMPTYING [None]
  - LEUKOCYTOSIS [None]
  - LUNG INFILTRATION [None]
  - MACULAR DEGENERATION [None]
  - MYOCARDIAL INFARCTION [None]
  - OEDEMA PERIPHERAL [None]
  - ORTHOPNOEA [None]
  - PALPITATIONS [None]
  - PLEURAL EFFUSION [None]
  - PNEUMONIA [None]
  - POLLAKIURIA [None]
  - PRODUCTIVE COUGH [None]
  - PROSTATE CANCER [None]
  - PULMONARY OEDEMA [None]
  - RENAL CYST [None]
  - RENAL FAILURE [None]
  - RENAL FAILURE ACUTE [None]
  - RESPIRATORY DISTRESS [None]
  - RESPIRATORY FAILURE [None]
  - RHONCHI [None]
  - TACHYCARDIA [None]
  - THYROIDITIS [None]
  - URINARY RETENTION [None]
  - URINARY TRACT INFECTION [None]
  - VITAMIN B12 DEFICIENCY [None]
